FAERS Safety Report 8338704-0 (Version None)
Quarter: 2012Q2

REPORT INFORMATION
  Report Type: 
  Country: None (occurrence: None)
  Receive Date: 20120504
  Receipt Date: 20120501
  Transmission Date: 20120825
  Serious: Yes (Other)
  Sender: FDA-Public Use
  Company Number: PHHY2012JP037084

PATIENT
  Age: 86 Year
  Sex: Female

DRUGS (5)
  1. DONEPEZIL HCL [Interacting]
     Dosage: 5 MG, UNK
  2. ROSUVASTATIN [Interacting]
     Indication: HYPERCHOLESTEROLAEMIA
     Dosage: 2.5 MG, UNK
  3. BROTIZOLAM [Concomitant]
     Indication: DEPRESSION
     Dosage: 0.5 MG, UNK
  4. DONEPEZIL HCL [Suspect]
     Indication: DEMENTIA ALZHEIMER'S TYPE
     Dosage: 3 MG, UNK
  5. DULOXETINE HYDROCHLORIDE [Interacting]
     Indication: DEPRESSION
     Dosage: 60 MG, UNK

REACTIONS (4)
  - DRUG INTERACTION [None]
  - HALLUCINATION [None]
  - DISORIENTATION [None]
  - DELIRIUM [None]
